APPROVED DRUG PRODUCT: ESLICARBAZEPINE ACETATE
Active Ingredient: ESLICARBAZEPINE ACETATE
Strength: 200MG
Dosage Form/Route: TABLET;ORAL
Application: A211247 | Product #001 | TE Code: AB
Applicant: SPH ZHONGXI PHARMACEUTICAL CO LTD
Approved: Nov 3, 2025 | RLD: No | RS: No | Type: RX